FAERS Safety Report 12438088 (Version 2)
Quarter: 2016Q2

REPORT INFORMATION
  Report Type: Report from Study
  Country: ES (occurrence: ES)
  Receive Date: 20160606
  Receipt Date: 20160606
  Transmission Date: 20160815
  Serious: Yes (Hospitalization)
  Sender: FDA-Public Use
  Company Number: ES-GLAXOSMITHKLINE-ES2016076701

PATIENT
  Age: 75 Year
  Sex: Male
  Weight: 70.3 kg

DRUGS (1)
  1. ALBIGLUTIDE [Suspect]
     Active Substance: ALBIGLUTIDE
     Indication: TYPE 2 DIABETES MELLITUS
     Dosage: UNK, WE
     Route: 058
     Dates: start: 20151028, end: 20160106

REACTIONS (1)
  - Enteritis [Recovered/Resolved]

NARRATIVE: CASE EVENT DATE: 20160525
